FAERS Safety Report 9994887 (Version 2)
Quarter: 2014Q1

REPORT INFORMATION
  Report Type: Spontaneous
  Country: CA (occurrence: CA)
  Receive Date: 20140311
  Receipt Date: 20140319
  Transmission Date: 20141002
  Serious: Yes (Hospitalization, Other)
  Sender: FDA-Public Use
  Company Number: CA-JNJFOC-20140302341

PATIENT
  Age: 40 Year
  Sex: Male
  Weight: 85 kg

DRUGS (9)
  1. TRAMADOL HYDROCHLORIDE [Suspect]
     Indication: ANALGESIC THERAPY
     Route: 048
  2. TRAMADOL HYDROCHLORIDE [Suspect]
     Indication: ANALGESIC THERAPY
     Route: 048
  3. OROS HYDROMORPHONE [Suspect]
     Indication: BREAKTHROUGH PAIN
     Dosage: 1-2 MG AS NEEDED
     Route: 048
  4. ACETAMINOPHEN [Suspect]
     Route: 048
  5. ACETAMINOPHEN [Suspect]
     Indication: ANALGESIC THERAPY
     Route: 048
  6. PREGABALIN [Suspect]
     Indication: ANALGESIC THERAPY
     Dosage: ONCE IN MORNING
     Route: 048
  7. PREGABALIN [Suspect]
     Indication: ANALGESIC THERAPY
     Dosage: ONCE IN MORNING
     Route: 048
  8. NORTRIPTYLINE [Suspect]
     Indication: ANALGESIC THERAPY
     Route: 048
  9. HYDROMORPHONE [Suspect]
     Indication: BREAKTHROUGH PAIN
     Route: 058

REACTIONS (8)
  - Hallucination [Unknown]
  - Drug hypersensitivity [Unknown]
  - Pain [Recovering/Resolving]
  - Sedation [Unknown]
  - Nausea [Unknown]
  - Vomiting [Unknown]
  - Treatment noncompliance [Unknown]
  - Infection [Unknown]
